FAERS Safety Report 25400221 (Version 4)
Quarter: 2025Q3

REPORT INFORMATION
  Report Type: Report from Study
  Country: US (occurrence: US)
  Receive Date: 20250605
  Receipt Date: 20250903
  Transmission Date: 20251021
  Serious: No
  Sender: SUNOVION
  Company Number: US-SMPA-2025SPA006594AA

PATIENT
  Age: 79 Year
  Sex: Male

DRUGS (15)
  1. ORGOVYX [Suspect]
     Active Substance: RELUGOLIX
     Indication: Prostate cancer
     Route: 048
  2. ORGOVYX [Suspect]
     Active Substance: RELUGOLIX
     Dosage: 120 MG, QD
     Route: 048
     Dates: start: 20250505
  3. NUBEQA [Suspect]
     Active Substance: DAROLUTAMIDE
     Indication: Prostate cancer
     Dosage: 600 MG, BID
  4. ATORVASTATIN [Concomitant]
     Active Substance: ATORVASTATIN
  5. CELECOXIB [Concomitant]
     Active Substance: CELECOXIB
  6. CICLOPIROX [Concomitant]
     Active Substance: CICLOPIROX
  7. CLARITIN [Concomitant]
     Active Substance: LORATADINE
  8. CALCIUM [Concomitant]
     Active Substance: CALCIUM
  9. IRBESARTAN [Concomitant]
     Active Substance: IRBESARTAN
  10. PATADAY [Concomitant]
     Active Substance: OLOPATADINE HYDROCHLORIDE
  11. SODIUM BICARBONATE [Concomitant]
     Active Substance: SODIUM BICARBONATE
  12. ASPIRIN [Concomitant]
     Active Substance: ASPIRIN
  13. VITAMIN D3 [Concomitant]
     Active Substance: CHOLECALCIFEROL
  14. NADOLOL [Concomitant]
     Active Substance: NADOLOL
  15. BENZONATATE [Concomitant]
     Active Substance: BENZONATATE

REACTIONS (7)
  - Taste disorder [Unknown]
  - Cough [Unknown]
  - Oropharyngeal pain [Unknown]
  - Rash [Unknown]
  - Hot flush [Unknown]
  - Fatigue [Unknown]
  - Product dose omission issue [Recovered/Resolved]
